FAERS Safety Report 23060463 (Version 1)
Quarter: 2023Q4

REPORT INFORMATION
  Report Type: Spontaneous
  Country: US (occurrence: US)
  Receive Date: 20231012
  Receipt Date: 20231012
  Transmission Date: 20240110
  Serious: No
  Sender: FDA-Public Use
  Company Number: US-PERRIGO-22US012829

PATIENT
  Age: 41 Year
  Sex: Female
  Weight: 53.515 kg

DRUGS (1)
  1. NICOTINE POLACRILEX [Suspect]
     Active Substance: NICOTINE
     Indication: Ex-tobacco user
     Dosage: 4 MG, SINGLE
     Route: 002
     Dates: start: 20220915, end: 20220915

REACTIONS (5)
  - Throat irritation [Recovered/Resolved]
  - Pain [Recovered/Resolved]
  - Salivary hypersecretion [Recovered/Resolved]
  - Dysphagia [Recovered/Resolved]
  - Wrong technique in product usage process [Unknown]

NARRATIVE: CASE EVENT DATE: 20220915
